FAERS Safety Report 5670129-9 (Version None)
Quarter: 2008Q1

REPORT INFORMATION
  Report Type: 
  Country: None (occurrence: None)
  Receive Date: 20080312
  Receipt Date: 20080228
  Transmission Date: 20080703
  Serious: Yes (Hospitalization)
  Sender: FDA-Public Use
  Company Number: TCI2008A01045

PATIENT
  Age: 73 Year
  Sex: Female

DRUGS (7)
  1. ACTOS [Suspect]
     Indication: DIABETES MELLITUS
     Dosage: 7.5 MG (7.5 MG, 1 IN 1 D), PER ORAL
     Route: 048
     Dates: start: 20071126, end: 20080216
  2. MEDET   (METFORMIN HYDROCHLORIDE) [Concomitant]
  3. ATELEC   (CILNIDIPINE) [Concomitant]
  4. ENALAPRIL MALEATE [Concomitant]
  5. PLETAL [Concomitant]
  6. LOSARTAN POTASSIUM [Concomitant]
  7. RETICOLAN (MECOBALAMIN) [Concomitant]

REACTIONS (4)
  - ALBUMIN URINE PRESENT [None]
  - BACK PAIN [None]
  - BONE DENSITY DECREASED [None]
  - SPINAL COMPRESSION FRACTURE [None]
